FAERS Safety Report 18267310 (Version 1)
Quarter: 2020Q3

REPORT INFORMATION
  Report Type: Spontaneous
  Country: US (occurrence: US)
  Receive Date: 20200915
  Receipt Date: 20200915
  Transmission Date: 20201103
  Serious: Yes (Hospitalization)
  Sender: FDA-Public Use
  Company Number: None

PATIENT
  Age: 59 Year
  Sex: Female
  Weight: 82 kg

DRUGS (2)
  1. FULVESTRANT. [Concomitant]
     Active Substance: FULVESTRANT
     Dates: start: 20160927
  2. PALBOCICLIB [Suspect]
     Active Substance: PALBOCICLIB
     Indication: BREAST CANCER
     Route: 048
     Dates: start: 20160920

REACTIONS (6)
  - Cough [None]
  - Interstitial lung disease [None]
  - Cardiac failure congestive [None]
  - Dyspnoea [None]
  - Palpitations [None]
  - Cardiomyopathy [None]

NARRATIVE: CASE EVENT DATE: 20200730
